FAERS Safety Report 23280406 (Version 1)
Quarter: 2023Q4

REPORT INFORMATION
  Report Type: Spontaneous
  Country: US (occurrence: US)
  Receive Date: 20231211
  Receipt Date: 20231211
  Transmission Date: 20240110
  Serious: No
  Sender: FDA-Public Use
  Company Number: US-JNJFOC-20231138966

PATIENT
  Sex: Female

DRUGS (2)
  1. ZYRTEC [Suspect]
     Active Substance: CETIRIZINE HYDROCHLORIDE
     Indication: Antiinflammatory therapy
     Route: 065
  2. GINGER [Concomitant]
     Active Substance: GINGER
     Indication: Antiinflammatory therapy
     Route: 065

REACTIONS (1)
  - Product use in unapproved indication [Unknown]
